FAERS Safety Report 20357182 (Version 1)
Quarter: 2022Q1

REPORT INFORMATION
  Report Type: Spontaneous
  Country: US (occurrence: US)
  Receive Date: 20220120
  Receipt Date: 20220120
  Transmission Date: 20220423
  Serious: No
  Sender: FDA-Public Use
  Company Number: US-JNJFOC-20220124869

PATIENT
  Sex: Female

DRUGS (1)
  1. SPRAVATO [Suspect]
     Active Substance: ESKETAMINE
     Indication: Major depression

REACTIONS (9)
  - COVID-19 [Unknown]
  - Withdrawal syndrome [Unknown]
  - Thinking abnormal [Unknown]
  - Pain [Unknown]
  - Diarrhoea [Unknown]
  - Product dose omission issue [Unknown]
  - Emotional distress [Unknown]
  - Anxiety [Unknown]
  - Heart rate increased [Unknown]

NARRATIVE: CASE EVENT DATE: 20211230
